FAERS Safety Report 18864363 (Version 1)
Quarter: 2021Q1

REPORT INFORMATION
  Report Type: Spontaneous
  Country: HR (occurrence: HR)
  Receive Date: 20210208
  Receipt Date: 20210208
  Transmission Date: 20210420
  Serious: Yes (Other)
  Sender: FDA-Public Use
  Company Number: HR-009507513-2101HRV013440

PATIENT
  Age: 46 Year
  Sex: Male
  Weight: 73 kg

DRUGS (3)
  1. METADON [Concomitant]
     Active Substance: METHADONE HYDROCHLORIDE
  2. RIBAVIRIN. [Suspect]
     Active Substance: RIBAVIRIN
     Indication: CHRONIC HEPATITIS C
     Dosage: 1000 MG, UNK
     Route: 065
  3. HARVONI [Suspect]
     Active Substance: LEDIPASVIR\SOFOSBUVIR
     Indication: CHRONIC HEPATITIS C
     Dosage: UNK
     Route: 065

REACTIONS (1)
  - Treatment failure [Unknown]
